FAERS Safety Report 5214235-1 (Version None)
Quarter: 2007Q1

REPORT INFORMATION
  Report Type: 
  Country: None (occurrence: None)
  Receive Date: 20070122
  Receipt Date: 20061121
  Transmission Date: 20070707
  Serious: No
  Sender: FDA-Public Use
  Company Number: DE-ELI_LILLY_AND_COMPANY-DE200612003910

PATIENT
  Age: 70 Year
  Sex: Female

DRUGS (3)
  1. YENTREVE [Suspect]
     Indication: URINARY INCONTINENCE
     Dosage: 20 MG, UNK
     Dates: start: 20060101, end: 20061120
  2. YENTREVE [Suspect]
     Dosage: 40 MG, UNK
  3. ELOBACT [Concomitant]
     Indication: NASOPHARYNGITIS

REACTIONS (5)
  - BLOOD LACTATE DEHYDROGENASE INCREASED [None]
  - GAMMA-GLUTAMYLTRANSFERASE ABNORMAL [None]
  - HYPERHIDROSIS [None]
  - SKIN ODOUR ABNORMAL [None]
  - URINE OUTPUT DECREASED [None]
